FAERS Safety Report 17794355 (Version 4)
Quarter: 2021Q4

REPORT INFORMATION
  Report Type: Report from Study
  Country: BE (occurrence: BE)
  Receive Date: 20200515
  Receipt Date: 20211027
  Transmission Date: 20220303
  Serious: Yes (Other)
  Sender: FDA-Public Use
  Company Number: BE-ROCHE-2586630

PATIENT
  Age: 74 Year
  Sex: Male
  Weight: 72 kg

DRUGS (38)
  1. PACLITAXEL [Suspect]
     Active Substance: PACLITAXEL
     Indication: Non-small cell lung cancer
     Dosage: UNK
     Route: 065
  2. ETOPOSIDE [Suspect]
     Active Substance: ETOPOSIDE
     Indication: Non-small cell lung cancer
     Dosage: 142.54 MILLIGRAM
     Route: 065
     Dates: start: 20200302
  3. ETOPOSIDE [Suspect]
     Active Substance: ETOPOSIDE
     Indication: Small cell lung cancer extensive stage
  4. CARBOPLATIN [Suspect]
     Active Substance: CARBOPLATIN
     Indication: Non-small cell lung cancer
     Dosage: 300 MILLIGRAM
     Route: 065
     Dates: start: 20200302
  5. CARBOPLATIN [Suspect]
     Active Substance: CARBOPLATIN
     Indication: Small cell lung cancer extensive stage
  6. BEVACIZUMAB [Suspect]
     Active Substance: BEVACIZUMAB
     Indication: Non-small cell lung cancer
     Dosage: UNK
     Route: 065
  7. ATEZOLIZUMAB [Suspect]
     Active Substance: ATEZOLIZUMAB
     Indication: Non-small cell lung cancer
     Dosage: 1200 MILLIGRAM, 3XW
     Route: 041
     Dates: start: 20200302, end: 20200302
  8. ATEZOLIZUMAB [Suspect]
     Active Substance: ATEZOLIZUMAB
     Indication: Small cell lung cancer extensive stage
     Dosage: 1200 MILLIGRAM, 3XW/ START DATE: 20-APR-2020
     Route: 041
     Dates: end: 20200420
  9. ASPIRIN [Concomitant]
     Active Substance: ASPIRIN
     Dosage: UNK UNK, QD
     Dates: start: 2016
  10. SYNGEL [Concomitant]
     Indication: Radiation oesophagitis
     Dosage: 0.33 DAY
     Dates: start: 20190603, end: 202003
  11. AVELOX [Concomitant]
     Active Substance: MOXIFLOXACIN HYDROCHLORIDE
     Indication: Leukopenia
     Dosage: UNK UNK, QD
     Dates: start: 20200220, end: 20200302
  12. PERINDOPRIL [Concomitant]
     Active Substance: PERINDOPRIL
     Indication: Hypertension
     Dosage: UNK UNK, QD
     Dates: start: 2016
  13. ALLOPURINOL [Concomitant]
     Active Substance: ALLOPURINOL
     Indication: Gout
     Dosage: UNK UNK, QD
     Dates: start: 2016
  14. LIPEGFILGRASTIM [Concomitant]
     Active Substance: LIPEGFILGRASTIM
     Dosage: UNK UNK, QD/ START DATE: 02-APR-2020
     Dates: end: 20200402
  15. LIPEGFILGRASTIM [Concomitant]
     Active Substance: LIPEGFILGRASTIM
     Dosage: UNK, MONTHLY/ START DATE:24-NOV-2020
  16. LIPEGFILGRASTIM [Concomitant]
     Active Substance: LIPEGFILGRASTIM
     Dosage: UNK, QD/ START DATE: 05-JUN-2020
     Dates: end: 20200605
  17. PANTOPRAZOLE SODIUM [Concomitant]
     Active Substance: PANTOPRAZOLE SODIUM
     Indication: Radiation oesophagitis
     Dosage: 0.5 DAY
     Dates: start: 20190603
  18. DAFALGAN [Concomitant]
     Active Substance: ACETAMINOPHEN
     Indication: Radiation oesophagitis
     Dosage: UNK, QID
     Dates: start: 20190603, end: 202003
  19. FLUOROMETHOLONE [Concomitant]
     Active Substance: FLUOROMETHOLONE
     Dosage: UNK UNK, QD
     Dates: start: 20160320
  20. FLUOROMETHOLONE [Concomitant]
     Active Substance: FLUOROMETHOLONE
     Dosage: UNK UNK, QD
     Dates: start: 20190320
  21. DIFLUCAN [Concomitant]
     Active Substance: FLUCONAZOLE
     Indication: Radiation oesophagitis
     Dosage: UNK UNK, QD
     Dates: start: 20190603, end: 202003
  22. DEXAMETHASONE [Concomitant]
     Active Substance: DEXAMETHASONE
     Dosage: 12 MILLIGRAM
     Dates: start: 20200203, end: 20200203
  23. DEXAMETHASONE [Concomitant]
     Active Substance: DEXAMETHASONE
     Dosage: 12 MILLIGRAM
     Dates: start: 20200302, end: 20200302
  24. DEXAMETHASONE [Concomitant]
     Active Substance: DEXAMETHASONE
     Dosage: 12 MILLIGRAM/ START DATE: 20-APR-2020
     Dates: end: 20200420
  25. DEXAMETHASONE [Concomitant]
     Active Substance: DEXAMETHASONE
     Dosage: UNK, QD/ START DATE: 24-NOV-2020
     Dates: end: 20201124
  26. DEXAMETHASONE [Concomitant]
     Active Substance: DEXAMETHASONE
     Dosage: UNK, QD/ START DATE: 15-DEC-2020
     Dates: end: 20201215
  27. AKYNZEO [Concomitant]
     Active Substance: NETUPITANT\PALONOSETRON HYDROCHLORIDE
     Dosage: 300.5 MILLIGRAM
     Dates: start: 20200203, end: 20200203
  28. AKYNZEO [Concomitant]
     Active Substance: NETUPITANT\PALONOSETRON HYDROCHLORIDE
     Dosage: 300.5 MILLIGRAM/START DATE: 20-APR-2020
     Dates: end: 20200420
  29. AKYNZEO [Concomitant]
     Active Substance: NETUPITANT\PALONOSETRON HYDROCHLORIDE
     Dosage: UNK, QD/ START DATE: 24-NOV-2020
     Dates: end: 20201124
  30. AKYNZEO [Concomitant]
     Active Substance: NETUPITANT\PALONOSETRON HYDROCHLORIDE
     Dosage: UNK, QD/ START DATE: 15-DEC-2020
     Dates: end: 20201215
  31. CARBOPLATIN [Concomitant]
     Active Substance: CARBOPLATIN
     Dosage: START DATE: 24-NOV-2020
     Dates: end: 20210126
  32. MOUTH WASH [Concomitant]
     Indication: Stomatitis
     Dosage: UNK, QD/ START DATE: 20-MAR-2020
     Dates: end: 202004
  33. MOUTH WASH [Concomitant]
     Dosage: START DATE: 30-DEC-2020
     Dates: end: 20210105
  34. ALIZAPRIDE [Concomitant]
     Active Substance: ALIZAPRIDE
     Dosage: UNK, QD/ START DATE: 24-NOV-2020
  35. CLOBETASOL PROPIONATE [Concomitant]
     Active Substance: CLOBETASOL PROPIONATE
     Indication: Stomatitis
     Dosage: UNK, QD (0.05%)/ START DATE: 20-MAR-2020
     Dates: end: 202004
  36. ETOPOSIDE [Concomitant]
     Active Substance: ETOPOSIDE
     Dosage: START DATE:24-NOV-2020
     Dates: end: 20201126
  37. PERINDOPRIL [Concomitant]
     Active Substance: PERINDOPRIL
     Indication: Hypertension
     Dosage: UNK, QD
     Dates: start: 2016
  38. CISPLATIN [Concomitant]
     Active Substance: CISPLATIN
     Dosage: UNK

REACTIONS (4)
  - Neutropenia [Recovered/Resolved]
  - Psoriasis [Recovered/Resolved]
  - Dermatitis [Recovering/Resolving]
  - Stomatitis [Recovered/Resolved]

NARRATIVE: CASE EVENT DATE: 20200313
